FAERS Safety Report 13366921 (Version 2)
Quarter: 2017Q2

REPORT INFORMATION
  Report Type: Spontaneous
  Country: FR (occurrence: FR)
  Receive Date: 20170323
  Receipt Date: 20170421
  Transmission Date: 20170830
  Serious: Yes (Life-Threatening, Hospitalization)
  Sender: FDA-Public Use
  Company Number: FR-ROCHE-1910892

PATIENT
  Age: 74 Year
  Sex: Female
  Weight: 69 kg

DRUGS (7)
  1. KARDEGIC [Concomitant]
     Active Substance: ASPIRIN LYSINE
  2. CORDARONE [Concomitant]
     Active Substance: AMIODARONE HYDROCHLORIDE
  3. COOLMETEC [Concomitant]
     Active Substance: HYDROCHLOROTHIAZIDE\OLMESARTAN MEDOXOMIL
  4. LASILIX [Concomitant]
     Active Substance: FUROSEMIDE
  5. FLECAINE [Concomitant]
     Active Substance: FLECAINIDE
  6. AVASTIN [Suspect]
     Active Substance: BEVACIZUMAB
     Indication: OVARIAN CANCER
     Route: 042
     Dates: start: 201603, end: 20170228
  7. BROMAZEPAM [Concomitant]
     Active Substance: BROMAZEPAM
     Route: 065

REACTIONS (6)
  - Aphasia [Unknown]
  - Ischaemic stroke [Recovered/Resolved with Sequelae]
  - Hypertension [Unknown]
  - Proteinuria [Unknown]
  - Hemiparesis [Unknown]
  - Facial paralysis [Unknown]

NARRATIVE: CASE EVENT DATE: 201701
